FAERS Safety Report 8145036-2 (Version None)
Quarter: 2012Q1

REPORT INFORMATION
  Report Type: 
  Country: None (occurrence: None)
  Receive Date: 20120217
  Receipt Date: 20120210
  Transmission Date: 20120608
  Serious: Yes (Other)
  Sender: FDA-Public Use
  Company Number: PHEH2012US003625

PATIENT
  Sex: Male

DRUGS (5)
  1. PENICILLIN VK [Concomitant]
     Dosage: 250 MG, BID
     Route: 048
     Dates: start: 20090501
  2. FOLIC ACID [Concomitant]
     Indication: HAEMOLYTIC ANAEMIA
     Dosage: 0.4 MG, QD
     Route: 048
     Dates: start: 20090501
  3. EXJADE [Suspect]
     Indication: IRON OVERLOAD
  4. BLOOD TRANSFUSION, AUXILIARY PRODUCTS [Concomitant]
  5. EXJADE [Suspect]
     Indication: THALASSAEMIA
     Dosage: 500 MG, QD
     Route: 048
     Dates: start: 20100501, end: 20110701

REACTIONS (4)
  - GALLBLADDER DISORDER [None]
  - LIVER DISORDER [None]
  - HEPATIC ENZYME INCREASED [None]
  - HEPATOMEGALY [None]
